FAERS Safety Report 5141963-9 (Version None)
Quarter: 2006Q4

REPORT INFORMATION
  Report Type: 
  Country: None (occurrence: None)
  Receive Date: 20061102
  Receipt Date: 20061016
  Transmission Date: 20070319
  Serious: Yes (Hospitalization)
  Sender: FDA-Public Use
  Company Number: PHHO2006CH17110

PATIENT
  Age: 69 Year
  Sex: Female

DRUGS (2)
  1. ESIDRIX [Suspect]
     Indication: HYPERTENSION
     Dosage: 12.5 MG, QD
     Route: 048
     Dates: start: 20061009, end: 20061013
  2. VALSARTAN [Suspect]
     Indication: HYPERTENSION
     Dosage: DOUBLE-BLIND
     Route: 048

REACTIONS (7)
  - ARTHRALGIA [None]
  - FACE INJURY [None]
  - FALL [None]
  - LIMB DISCOMFORT [None]
  - PAIN IN EXTREMITY [None]
  - RHINALGIA [None]
  - SYNCOPE [None]
